FAERS Safety Report 11381274 (Version 1)
Quarter: 2015Q3

REPORT INFORMATION
  Report Type: Spontaneous
  Country: US (occurrence: US)
  Receive Date: 20150814
  Receipt Date: 20150814
  Transmission Date: 20151125
  Serious: No
  Sender: FDA-Public Use
  Company Number: US-JNJFOC-20150712776

PATIENT
  Sex: Female
  Weight: 108.86 kg

DRUGS (7)
  1. EFFEXOR [Concomitant]
     Active Substance: VENLAFAXINE HYDROCHLORIDE
     Indication: ANXIETY
     Dosage: STARTED 6-7 YEARS AGO (YEAR UNSPECIFIED)
     Route: 065
  2. DURAGESIC [Suspect]
     Active Substance: FENTANYL
     Indication: ARTHRITIS
     Route: 062
     Dates: start: 2015
  3. DOXEPIN [Concomitant]
     Active Substance: DOXEPIN
     Indication: ANXIETY
     Dosage: AT NIGHT
     Route: 065
     Dates: start: 2015
  4. DOXEPIN [Concomitant]
     Active Substance: DOXEPIN
     Indication: SLEEP DISORDER
     Dosage: AT NIGHT
     Route: 065
     Dates: start: 2015
  5. EFFEXOR [Concomitant]
     Active Substance: VENLAFAXINE HYDROCHLORIDE
     Indication: DEPRESSION
     Dosage: STARTED 6-7 YEARS AGO (YEAR UNSPECIFIED)
     Route: 065
  6. DURAGESIC [Suspect]
     Active Substance: FENTANYL
     Indication: BACK PAIN
     Route: 062
     Dates: start: 2015
  7. DOXEPIN [Concomitant]
     Active Substance: DOXEPIN
     Indication: DEPRESSION
     Dosage: AT NIGHT
     Route: 065
     Dates: start: 2015

REACTIONS (3)
  - Product quality issue [Unknown]
  - Hyperhidrosis [Unknown]
  - Underdose [Unknown]
